FAERS Safety Report 7106546-X (Version None)
Quarter: 2010Q4

REPORT INFORMATION
  Report Type: 
  Country: None (occurrence: None)
  Receive Date: 20101116
  Receipt Date: 20071203
  Transmission Date: 20110411
  Serious: Yes (Death, Life-Threatening, Hospitalization)
  Sender: FDA-Public Use
  Company Number: FR-GENENTECH-246065

PATIENT
  Sex: Female

DRUGS (10)
  1. XOLAIR [Suspect]
     Indication: ASTHMA
     Dosage: 150 MG, 2/WEEK
     Route: 058
     Dates: start: 20061027
  2. CORTICOSTEROIDS (UNK INGREDIENTS) [Concomitant]
     Indication: ASTHMA
     Dosage: UNK
  3. BETA-2 AGONIST NOS [Concomitant]
     Indication: ASTHMA
  4. CORTANCYL [Concomitant]
     Indication: PRODUCT USED FOR UNKNOWN INDICATION
     Dosage: UNK
     Dates: end: 20070201
  5. CORTANCYL [Concomitant]
     Dosage: UNK
     Dates: start: 20070201
  6. SEREVENT [Concomitant]
  7. FLIXOTIDE [Concomitant]
     Indication: PRODUCT USED FOR UNKNOWN INDICATION
  8. BRICANYL [Concomitant]
     Indication: PRODUCT USED FOR UNKNOWN INDICATION
  9. VENTOLIN [Concomitant]
     Indication: PRODUCT USED FOR UNKNOWN INDICATION
  10. OMEPRAZOLE [Concomitant]
     Indication: PRODUCT USED FOR UNKNOWN INDICATION

REACTIONS (23)
  - ALANINE AMINOTRANSFERASE INCREASED [None]
  - AREFLEXIA [None]
  - ASPARTATE AMINOTRANSFERASE INCREASED [None]
  - ASTHMA [None]
  - ASTHMATIC CRISIS [None]
  - BLOOD GLUCOSE INCREASED [None]
  - BLOOD LACTATE DEHYDROGENASE INCREASED [None]
  - BLOOD POTASSIUM INCREASED [None]
  - BRAIN DEATH [None]
  - BRONCHOSPASM [None]
  - CARDIO-RESPIRATORY ARREST [None]
  - COMA [None]
  - DYSPNOEA [None]
  - GAMMA-GLUTAMYLTRANSFERASE INCREASED [None]
  - HYPERTENSION [None]
  - LOSS OF CONSCIOUSNESS [None]
  - MYDRIASIS [None]
  - MYOCLONUS [None]
  - PCO2 INCREASED [None]
  - PO2 INCREASED [None]
  - STATUS ASTHMATICUS [None]
  - VENTRICULAR TACHYCARDIA [None]
  - WHITE BLOOD CELL COUNT INCREASED [None]
